FAERS Safety Report 10219834 (Version 1)
Quarter: 2014Q2

REPORT INFORMATION
  Report Type: Spontaneous
  Country: US (occurrence: US)
  Receive Date: 20140605
  Receipt Date: 20140605
  Transmission Date: 20141212
  Serious: Yes (Hospitalization, Other)
  Sender: FDA-Public Use
  Company Number: US-ASTRAZENECA-2014SE37179

PATIENT
  Sex: Female

DRUGS (3)
  1. SEROQUEL XR [Suspect]
     Indication: BIPOLAR DISORDER
     Route: 048
  2. ZOLOFT [Concomitant]
  3. BUSPAR [Concomitant]

REACTIONS (7)
  - Serotonin syndrome [Unknown]
  - Atrial fibrillation [Unknown]
  - Nausea [Unknown]
  - Diarrhoea [Unknown]
  - Restlessness [Unknown]
  - Anxiety [Unknown]
  - Insomnia [Unknown]
